FAERS Safety Report 12737044 (Version 3)
Quarter: 2017Q3

REPORT INFORMATION
  Report Type: Spontaneous
  Country: JP (occurrence: JP)
  Receive Date: 20160913
  Receipt Date: 20170705
  Transmission Date: 20171127
  Serious: Yes (Life-Threatening, Hospitalization, Other)
  Sender: FDA-Public Use
  Company Number: JP-ASTRAZENECA-2016SE95761

PATIENT
  Age: 71 Year
  Sex: Male

DRUGS (9)
  1. SODIUM RISEDRONATE HYDRATE [Concomitant]
     Active Substance: RISEDRONATE SODIUM HEMI-PENTAHYDRATE
     Dosage: DOSE UNKNOWN
     Route: 065
     Dates: end: 20160901
  2. PIOGLITAZONE. [Concomitant]
     Active Substance: PIOGLITAZONE
     Dosage: DOSE UNKNOWN
     Route: 065
     Dates: end: 20160901
  3. CASODEX [Suspect]
     Active Substance: BICALUTAMIDE
     Indication: PROSTATE CANCER
     Route: 048
     Dates: start: 200703, end: 201310
  4. INSULIN [Concomitant]
     Active Substance: INSULIN NOS
     Dosage: DOSE UNKNOWN
     Route: 065
     Dates: end: 20160901
  5. LEUPRORELIN ACETATE [Concomitant]
     Active Substance: LEUPROLIDE ACETATE
     Dosage: DOSE UNKNOWN
     Route: 058
     Dates: start: 201603, end: 20160901
  6. LIRAGLUTIDE [Concomitant]
     Active Substance: LIRAGLUTIDE
     Dosage: DOSE UNKNOWN
     Route: 065
     Dates: end: 20160901
  7. METFORMIN HYDROCHLORIDE. [Concomitant]
     Active Substance: METFORMIN HYDROCHLORIDE
     Dosage: DOSE UNKNOWN
     Route: 065
     Dates: end: 20160901
  8. CASODEX [Suspect]
     Active Substance: BICALUTAMIDE
     Indication: PROSTATE CANCER
     Route: 048
     Dates: start: 201603, end: 20160901
  9. LOSARTAN POTASSIUM. [Concomitant]
     Active Substance: LOSARTAN POTASSIUM
     Dosage: 50.0MG UNKNOWN
     Route: 048
     Dates: end: 20160901

REACTIONS (10)
  - Electrocardiogram T wave abnormal [Unknown]
  - Electrocardiogram QT prolonged [Recovered/Resolved]
  - Bundle branch block right [Unknown]
  - Left ventricular failure [Unknown]
  - Ventricular tachycardia [Recovered/Resolved]
  - Atrial fibrillation [Unknown]
  - Blood pressure decreased [Unknown]
  - Generalised oedema [Unknown]
  - Ventricular fibrillation [Recovered/Resolved]
  - Tachycardia [Unknown]

NARRATIVE: CASE EVENT DATE: 20160902
